FAERS Safety Report 9165787 (Version 1)
Quarter: 2013Q1

REPORT INFORMATION
  Report Type: Spontaneous
  Country: US (occurrence: None)
  Receive Date: 20130314
  Receipt Date: 20130314
  Transmission Date: 20140127
  Serious: Yes (Life-Threatening, Disabling)
  Sender: FDA-Public Use
  Company Number: None

PATIENT
  Sex: Female
  Weight: 95.26 kg

DRUGS (1)
  1. DIOVAN HCT [Suspect]
     Dosage: 80/12.5 ONE PER DAY -} BY MOUTH
     Route: 048
     Dates: start: 20020327, end: 20130215

REACTIONS (4)
  - Fatigue [None]
  - Arthritis [None]
  - Skin lesion [None]
  - Systemic lupus erythematosus [None]
